FAERS Safety Report 19923540 (Version 2)
Quarter: 2021Q4

REPORT INFORMATION
  Report Type: Spontaneous
  Country: ES (occurrence: ES)
  Receive Date: 20211005
  Receipt Date: 20211129
  Transmission Date: 20220303
  Serious: Yes (Hospitalization, Other)
  Sender: FDA-Public Use
  Company Number: ES-NOVARTISPH-NVSC2021ES220120

PATIENT
  Age: 71 Year
  Sex: Male
  Weight: 87.3 kg

DRUGS (6)
  1. PREDNISONE [Suspect]
     Active Substance: PREDNISONE
     Indication: Prophylaxis against transplant rejection
     Dosage: 20 MG, QD (20 MILLIGRAM, QD )
     Route: 065
     Dates: start: 20190624
  2. MYFORTIC [Suspect]
     Active Substance: MYCOPHENOLATE SODIUM
     Indication: Prophylaxis against transplant rejection
     Dosage: 720 MG, QD
     Route: 065
     Dates: start: 20190624
  3. ENVARSUS XR [Suspect]
     Active Substance: TACROLIMUS
     Indication: Prophylaxis against transplant rejection
     Dosage: 1 DF, QD
     Route: 048
     Dates: start: 20190624, end: 20191112
  4. ENVARSUS XR [Suspect]
     Active Substance: TACROLIMUS
     Dosage: 1 MG, QD
     Route: 048
     Dates: start: 20190724, end: 20190906
  5. ENVARSUS XR [Suspect]
     Active Substance: TACROLIMUS
     Dosage: 1 DF, QD (3 UNK)
     Route: 048
     Dates: start: 20190812
  6. ENVARSUS XR [Suspect]
     Active Substance: TACROLIMUS
     Dosage: 1 DF, QD (2 UNK)
     Route: 048
     Dates: start: 20191112, end: 20200303

REACTIONS (4)
  - Urinary incontinence [Recovered/Resolved]
  - Sepsis [Recovered/Resolved]
  - Urosepsis [Recovered/Resolved]
  - BK virus infection [Recovered/Resolved]

NARRATIVE: CASE EVENT DATE: 20190723
